FAERS Safety Report 26178083 (Version 1)
Quarter: 2025Q4

REPORT INFORMATION
  Report Type: Spontaneous
  Country: EU (occurrence: EU)
  Receive Date: 20251219
  Receipt Date: 20251219
  Transmission Date: 20260118
  Serious: Yes (Other)
  Sender: TEVA
  Company Number: None

PATIENT
  Age: 29 Year
  Sex: Male
  Weight: 77 kg

DRUGS (5)
  1. DIAZEPAM [Suspect]
     Active Substance: DIAZEPAM
     Indication: Schizophrenia
     Dosage: 30 MG/DAY
     Route: 048
     Dates: start: 20241125, end: 20250904
  2. TROPATEPINE HYDROCHLORIDE [Suspect]
     Active Substance: TROPATEPINE HYDROCHLORIDE
     Indication: Schizophrenia
     Dosage: 20 MG/DAY
     Route: 048
     Dates: start: 20240901, end: 20250904
  3. LOXAPINE SUCCINATE [Suspect]
     Active Substance: LOXAPINE SUCCINATE
     Indication: Schizophrenia
     Dosage: 300 MG/DAY
     Route: 048
     Dates: start: 20240919, end: 20250904
  4. HALOPERIDOL [Suspect]
     Active Substance: HALOPERIDOL
     Indication: Schizophrenia
     Dosage: 15-20 MG/DAY, HALOPERIDOL THERAPLIX
     Route: 048
     Dates: start: 20240916
  5. TRIMEPRAZINE [Suspect]
     Active Substance: TRIMEPRAZINE
     Indication: Schizophrenia
     Dosage: 15 MG/DAY
     Route: 048
     Dates: start: 20240916, end: 20250904

REACTIONS (3)
  - Urinary retention [Not Recovered/Not Resolved]
  - Acute kidney injury [Recovered/Resolved]
  - Condition aggravated [Not Recovered/Not Resolved]

NARRATIVE: CASE EVENT DATE: 20250915
